FAERS Safety Report 5733884 (Version 6)
Quarter: 2014Q3

REPORT INFORMATION
  Report Type: Spontaneous
  Country: US (occurrence: US)
  Receive Date: 20050209
  Receipt Date: 20140901
  Transmission Date: 20150326
  Serious: Yes (Death)
  Sender: FDA-Public Use
  Company Number: US-JNJFOC-20050201556

PATIENT
  Age: 73 Year
  Sex: Male
  Weight: 54.43 kg

DRUGS (5)
  1. DURAGESIC [Suspect]
     Active Substance: FENTANYL
     Indication: PAIN
     Route: 062
     Dates: start: 20020418, end: 20020421
  2. HYDROCODONE [Concomitant]
     Active Substance: HYDROCODONE
     Indication: CANCER PAIN
     Dosage: START DATE: MAR-2002
     Route: 065
     Dates: start: 2002, end: 2002
  3. MORPHINE [Suspect]
     Active Substance: MORPHINE
     Indication: PAIN
     Route: 065
     Dates: start: 200203, end: 20020425
  4. DURAGESIC [Suspect]
     Active Substance: FENTANYL
     Indication: PAIN
     Route: 062
     Dates: start: 20020421, end: 20020425
  5. ROXANOL [Concomitant]
     Active Substance: MORPHINE SULFATE
     Indication: CANCER PAIN
     Dosage: START DATE: MAR-2002
     Route: 065
     Dates: start: 2002, end: 2002

REACTIONS (6)
  - Coma [Unknown]
  - Therapeutic response delayed [Unknown]
  - Malignant neoplasm progression [Fatal]
  - Wrong technique in drug usage process [Fatal]
  - Overdose [Fatal]
  - Non-small cell lung cancer stage IV [Fatal]

NARRATIVE: CASE EVENT DATE: 200204
